FAERS Safety Report 5124812-4 (Version None)
Quarter: 2006Q4

REPORT INFORMATION
  Report Type: 
  Country: None (occurrence: None)
  Receive Date: 20061006
  Receipt Date: 20060925
  Transmission Date: 20070319
  Serious: Yes (Other)
  Sender: FDA-Public Use
  Company Number: 2006116719

PATIENT

DRUGS (2)
  1. NORVASC [Suspect]
     Dosage: ORAL
     Route: 048
  2. DIOVAN [Concomitant]

REACTIONS (2)
  - DRY EYE [None]
  - EYELID PTOSIS [None]
